FAERS Safety Report 8489150-0 (Version None)
Quarter: 2012Q3

REPORT INFORMATION
  Report Type: 
  Country: None (occurrence: None)
  Receive Date: 20120705
  Receipt Date: 20120625
  Transmission Date: 20120928
  Serious: Yes (Hospitalization)
  Sender: FDA-Public Use
  Company Number: US-ASTRAZENECA-2012SE20731

PATIENT
  Age: 53 Year
  Sex: Female
  Weight: 134.7 kg

DRUGS (3)
  1. WARFARIN SODIUM [Concomitant]
     Indication: ATRIAL FIBRILLATION
  2. WARFARIN SODIUM [Concomitant]
     Indication: CARDIOVERSION
  3. SYMBICORT [Suspect]
     Route: 055

REACTIONS (2)
  - ABDOMINAL WALL HAEMATOMA [None]
  - HAEMORRHAGE [None]
